FAERS Safety Report 9420241 (Version 2)
Quarter: 2013Q3

REPORT INFORMATION
  Report Type: Spontaneous
  Country: US (occurrence: US)
  Receive Date: 20130725
  Receipt Date: 20130820
  Transmission Date: 20140515
  Serious: No
  Sender: FDA-Public Use
  Company Number: US-PFIZER INC-2013215858

PATIENT
  Age: 56 Year
  Sex: Female
  Weight: 74.83 kg

DRUGS (6)
  1. PROTONIX [Suspect]
     Indication: GASTROOESOPHAGEAL REFLUX DISEASE
     Dosage: 40 MG, 2X/DAY
     Route: 048
     Dates: start: 20130718
  2. SYNTHROID [Concomitant]
     Indication: HYPOTHYROIDISM
     Dosage: 100 UG, DAILY
     Dates: start: 20130411
  3. KLOR-CON [Concomitant]
     Dosage: 20 MEQ, 2X/DAY
     Dates: start: 20130718
  4. FLONASE [Concomitant]
     Dosage: 50 MCG/ACT SUSP, 2X/DAY
     Dates: start: 20130520
  5. CYANOCOBALAMIN [Concomitant]
     Dosage: 1000 UG, UNK
     Dates: start: 20130109
  6. FLOVENT [Concomitant]
     Dosage: 110 MCG/ACT
     Dates: start: 20120323

REACTIONS (1)
  - Alopecia [Not Recovered/Not Resolved]
